FAERS Safety Report 5726957-4 (Version None)
Quarter: 2008Q2

REPORT INFORMATION
  Report Type: 
  Country: None (occurrence: None)
  Receive Date: 20080502
  Receipt Date: 20080422
  Transmission Date: 20081010
  Serious: Yes (Other)
  Sender: FDA-Public Use
  Company Number: JP-PFIZER INC-2008017005

PATIENT
  Sex: Male

DRUGS (2)
  1. GENOTROPIN [Suspect]
     Indication: HYPOPITUITARISM
     Dosage: FREQ:0.5 U/KG/WEEK FIRST CYCLE
     Route: 058
     Dates: start: 19940823, end: 20030411
  2. GENOTROPIN [Suspect]
     Dosage: FREQ:1.4 MG/WEEK SECOND CYCLE
     Route: 058

REACTIONS (1)
  - INTRAOCULAR PRESSURE INCREASED [None]
